FAERS Safety Report 18212587 (Version 1)
Quarter: 2020Q3

REPORT INFORMATION
  Report Type: Spontaneous
  Country: US (occurrence: US)
  Receive Date: 20200828
  Receipt Date: 20200828
  Transmission Date: 20201103
  Serious: No
  Sender: FDA-Public Use
  Company Number: None

PATIENT
  Age: 81 Year
  Sex: Male

DRUGS (2)
  1. CALCQUENCE [Concomitant]
     Dates: start: 20200122, end: 20200828
  2. CALQUENCE [Suspect]
     Active Substance: ACALABRUTINIB
     Indication: LEUKAEMIA
     Route: 048
     Dates: start: 20200122, end: 20200827

REACTIONS (2)
  - Contusion [None]
  - Swelling [None]

NARRATIVE: CASE EVENT DATE: 20200827
